FAERS Safety Report 23420183 (Version 1)
Quarter: 2024Q1

REPORT INFORMATION
  Report Type: Spontaneous
  Country: GB (occurrence: None)
  Receive Date: 20240119
  Receipt Date: 20240119
  Transmission Date: 20240409
  Serious: Yes (Hospitalization)
  Sender: FDA-Public Use
  Company Number: 2024A004241

PATIENT
  Age: 83 Year
  Sex: Male

DRUGS (13)
  1. DAPAGLIFLOZIN [Suspect]
     Active Substance: DAPAGLIFLOZIN
     Dosage: ONE TO BE TAKEN DAILY
     Dates: start: 20231212, end: 20231221
  2. AMOXICILLIN [Suspect]
     Active Substance: AMOXICILLIN
     Dosage: TWO TO BE TAKEN THREE TIMES A DAY
     Dates: start: 20231212, end: 20231216
  3. BISOPROLOL [Suspect]
     Active Substance: BISOPROLOL\BISOPROLOL FUMARATE
     Dosage: ONE TABLET DAILY
     Dates: start: 20231212
  4. EPLERENONE [Suspect]
     Active Substance: EPLERENONE
     Dosage: HALF A TABLET TO BE TAKEN EACH DAY
     Dates: start: 20231212, end: 20231221
  5. FUROSEMIDE [Suspect]
     Active Substance: FUROSEMIDE
     Dosage: TWO TABLETS TWICE DAILY
     Dates: start: 20231212, end: 20231221
  6. SACUBITRIL\VALSARTAN [Suspect]
     Active Substance: SACUBITRIL\VALSARTAN
     Dosage: ONE TO BE TAKEN TWICE A DAY
     Dates: start: 20231212, end: 20231224
  7. BISOPROLOL [Concomitant]
     Active Substance: BISOPROLOL\BISOPROLOL FUMARATE
     Dosage: ONE TO BE TAKEN EACH MORNING
     Dates: start: 20231220
  8. DAPAGLIFLOZIN [Concomitant]
     Active Substance: DAPAGLIFLOZIN
     Dosage: ONE DAILY IN THE MORNING
     Dates: start: 20231220
  9. FUROSEMIDE [Concomitant]
     Active Substance: FUROSEMIDE
     Dosage: TWO TABLETS IN THE MORNING AND TWO AT LUNCHTIME
     Dates: start: 20231220
  10. LINAGLIPTIN [Concomitant]
     Active Substance: LINAGLIPTIN
     Dosage: ONE TABLET DAILY AT THE SAME TIME EACH DAY
     Dates: start: 20231228
  11. METFORMIN [Concomitant]
     Active Substance: METFORMIN HYDROCHLORIDE
  12. SACUBITRIL\VALSARTAN [Concomitant]
     Active Substance: SACUBITRIL\VALSARTAN
     Dosage: ONE TO BE TAKEN TWICE A DAY
     Dates: start: 20231220
  13. EPLERENONE [Concomitant]
     Active Substance: EPLERENONE
     Dosage: HALF A TABLET ONCE DAILY IN THE MORNING
     Dates: start: 20231220

REACTIONS (3)
  - Renal tubular acidosis [Unknown]
  - Hyperkalaemia [Unknown]
  - Acute kidney injury [Unknown]

NARRATIVE: CASE EVENT DATE: 20231221
